FAERS Safety Report 7571566-8 (Version None)
Quarter: 2011Q2

REPORT INFORMATION
  Report Type: 
  Country: None (occurrence: None)
  Receive Date: 20110624
  Receipt Date: 20110610
  Transmission Date: 20111010
  Serious: Yes (Other)
  Sender: FDA-Public Use
  Company Number: US-JUTA GMBH-2011-08771

PATIENT
  Age: 74 Year
  Sex: Male

DRUGS (1)
  1. METOPROLOL TARTRATE [Suspect]
     Indication: PALPITATIONS

REACTIONS (1)
  - LICHENOID KERATOSIS [None]
